FAERS Safety Report 13401411 (Version 2)
Quarter: 2017Q2

REPORT INFORMATION
  Report Type: Spontaneous
  Country: SK (occurrence: SK)
  Receive Date: 20170404
  Receipt Date: 20170417
  Transmission Date: 20170830
  Serious: Yes (Hospitalization, Other)
  Sender: FDA-Public Use
  Company Number: SK-REGENERON PHARMACEUTICALS, INC.-2017-13979

PATIENT

DRUGS (1)
  1. EYLEA [Suspect]
     Active Substance: AFLIBERCEPT
     Indication: NEOVASCULAR AGE-RELATED MACULAR DEGENERATION
     Dosage: UNK (RECEIVED A TOTAL OF 22 INJECTIONS IN BOTH EYES, LAST INJECTION PRIOR TO EVENT ON 04-MAY-2016)
     Dates: start: 20140408

REACTIONS (1)
  - Coronary artery bypass [Unknown]

NARRATIVE: CASE EVENT DATE: 20160524
